FAERS Safety Report 7728225-8 (Version None)
Quarter: 2011Q3

REPORT INFORMATION
  Report Type: 
  Country: None (occurrence: None)
  Receive Date: 20110905
  Receipt Date: 20110825
  Transmission Date: 20111222
  Serious: Yes (Other)
  Sender: FDA-Public Use
  Company Number: PHEH2010US03433

PATIENT

DRUGS (3)
  1. AREDIA [Suspect]
  2. ZOMETA [Suspect]
     Indication: MULTIPLE MYELOMA
  3. ZOMETA [Suspect]
     Indication: METASTASES TO BONE

REACTIONS (13)
  - PAIN [None]
  - EXPOSED BONE IN JAW [None]
  - TOOTH EXTRACTION [None]
  - OSTEONECROSIS OF JAW [None]
  - ANXIETY [None]
  - INJURY [None]
  - EYE SWELLING [None]
  - ANHEDONIA [None]
  - SWELLING FACE [None]
  - TENDERNESS [None]
  - BONE LOSS [None]
  - GINGIVAL ERYTHEMA [None]
  - OSTEOMYELITIS [None]
